FAERS Safety Report 10068943 (Version 3)
Quarter: 2014Q2

REPORT INFORMATION
  Report Type: Spontaneous
  Country: US (occurrence: US)
  Receive Date: 20140409
  Receipt Date: 20140529
  Transmission Date: 20141212
  Serious: Yes (Hospitalization)
  Sender: FDA-Public Use
  Company Number: US-OTSUKA-US-2014-10662

PATIENT
  Age: 42 Year
  Sex: Female

DRUGS (3)
  1. ABILIFY MAINTENA [Suspect]
     Indication: SCHIZOAFFECTIVE DISORDER
     Dosage: 300 MG MILLIGRAM(S), QM
     Route: 065
     Dates: start: 201309
  2. ABILIFY MAINTENA [Suspect]
     Indication: BIPOLAR DISORDER
     Dosage: 400 MG MILLIGRAM(S), QM
     Dates: start: 20140228
  3. LAMOTRIGINE [Concomitant]
     Indication: PRODUCT USED FOR UNKNOWN INDICATION
     Dosage: UNK
     Route: 065

REACTIONS (5)
  - Delusion [Recovered/Resolved]
  - Abnormal behaviour [Recovered/Resolved]
  - Psychiatric symptom [Unknown]
  - Off label use [Unknown]
  - Anxiety [Recovered/Resolved]
